FAERS Safety Report 7267199-3 (Version None)
Quarter: 2011Q1

REPORT INFORMATION
  Report Type: 
  Country: None (occurrence: None)
  Receive Date: 20110201
  Receipt Date: 20110122
  Transmission Date: 20110831
  Serious: Yes (Other)
  Sender: FDA-Public Use
  Company Number: US-BAYER-2011-008125

PATIENT
  Sex: Female

DRUGS (1)
  1. MIRENA [Suspect]
     Indication: PRODUCT USED FOR UNKNOWN INDICATION
     Dosage: UNK
     Dates: start: 20101201

REACTIONS (3)
  - RASH MACULAR [None]
  - SKIN ULCER [None]
  - ABDOMINAL PAIN [None]
